FAERS Safety Report 19930441 (Version 2)
Quarter: 2022Q1

REPORT INFORMATION
  Report Type: Report from Study
  Country: AR (occurrence: AR)
  Receive Date: 20211008
  Receipt Date: 20220224
  Transmission Date: 20220423
  Serious: Yes (Death, Hospitalization, Other)
  Sender: FDA-Public Use
  Company Number: AR-SA-SAC20211005000293

PATIENT
  Age: 66 Year
  Sex: Female

DRUGS (1)
  1. SEVELAMER CARBONATE [Suspect]
     Active Substance: SEVELAMER CARBONATE
     Indication: Hyperphosphataemia
     Dosage: 4 DF, QD,  DOSE: 6 TABS PER DAY
     Route: 048
     Dates: start: 20201025

REACTIONS (3)
  - Death [Fatal]
  - Hyperparathyroidism [Recovering/Resolving]
  - Multiple fractures [Recovering/Resolving]
